FAERS Safety Report 5555211-9 (Version None)
Quarter: 2007Q4

REPORT INFORMATION
  Report Type: 
  Country: None (occurrence: None)
  Receive Date: 20071213
  Receipt Date: 20071204
  Transmission Date: 20080405
  Serious: Yes (Hospitalization)
  Sender: FDA-Public Use
  Company Number: US-KINGPHARMUSA00001-K200701563

PATIENT

DRUGS (14)
  1. ALTACE [Suspect]
     Indication: HYPERTENSION
     Dosage: UNK, QD
     Route: 048
     Dates: end: 20070811
  2. COUMADIN [Suspect]
     Indication: ATRIAL FIBRILLATION
     Dosage: 4 MG, QOD
     Route: 048
     Dates: end: 20070811
  3. COUMADIN [Suspect]
     Dosage: REDUCED DOSE
     Dates: start: 20070814
  4. INIPOMP /01263201/ [Suspect]
     Dosage: 20 MG, QD
     Route: 048
     Dates: end: 20070813
  5. FORLAX [Concomitant]
     Route: 048
  6. CACIT /00108001/ [Concomitant]
  7. CORTANCYL [Concomitant]
  8. HEMIGOXINE [Concomitant]
  9. CARDENSIEL [Concomitant]
  10. MOPRAL /00661201/ [Concomitant]
  11. FOSAVANCE [Concomitant]
  12. DIFFU K [Concomitant]
  13. HEXAMIDINE [Concomitant]
  14. EFFERALGAN /00020001/ [Concomitant]

REACTIONS (3)
  - FALL [None]
  - HYPONATRAEMIA [None]
  - INTERNATIONAL NORMALISED RATIO INCREASED [None]
